FAERS Safety Report 4309481-5 (Version None)
Quarter: 2004Q1

REPORT INFORMATION
  Report Type: 
  Country: None (occurrence: None)
  Receive Date: 20040227
  Receipt Date: 20030714
  Transmission Date: 20041129
  Serious: Yes (Death, Life-Threatening, Hospitalization, Disabling)
  Sender: FDA-Public Use
  Company Number: PHBS2003JP07466

PATIENT
  Age: 66 Year
  Sex: Male
  Weight: 51 kg

DRUGS (12)
  1. OMEPRAZOLE [Concomitant]
     Dosage: 20 MG/D
     Route: 048
     Dates: start: 20030410, end: 20030710
  2. GASMOTIN [Concomitant]
     Dosage: 15 MG/D
     Route: 048
     Dates: start: 20030410, end: 20030710
  3. LASIX [Concomitant]
     Dosage: 40 MG/D
     Route: 048
     Dates: start: 20030423, end: 20030710
  4. ALDACTONE [Concomitant]
     Dosage: 50 MG/D
     Route: 048
     Dates: start: 20030423, end: 20030710
  5. NORVASC [Concomitant]
     Dosage: 5 MG/D
     Route: 048
     Dates: end: 20030710
  6. PURSENNID [Concomitant]
     Dosage: 12 MG/D
     Route: 048
     Dates: start: 20030427, end: 20030710
  7. LAXOBERON [Concomitant]
     Route: 048
     Dates: start: 20030513, end: 20030710
  8. LAXOBERON [Concomitant]
     Dosage: 1000 MG/DAY
     Route: 042
     Dates: start: 20030719, end: 20030721
  9. SOLU-MEDROL [Suspect]
     Dosage: 1000 MG/DAY
     Route: 042
     Dates: start: 20030712, end: 20030714
  10. GLEEVEC [Suspect]
     Indication: GASTROINTESTINAL STROMAL TUMOUR
     Dosage: 400 MG/D
     Route: 048
     Dates: start: 20030519, end: 20030710
  11. PREDONINE [Suspect]
     Indication: INTERSTITIAL LUNG DISEASE
     Dosage: 100 MG/D
     Route: 042
     Dates: start: 20030715, end: 20030718
  12. PREDONINE [Suspect]
     Dosage: 100 MG/D
     Route: 042
     Dates: start: 20030722, end: 20030915

REACTIONS (10)
  - ANOREXIA [None]
  - BLOOD LACTATE DEHYDROGENASE INCREASED [None]
  - C-REACTIVE PROTEIN INCREASED [None]
  - DIZZINESS [None]
  - DYSPNOEA [None]
  - DYSPNOEA EXERTIONAL [None]
  - INTERSTITIAL LUNG DISEASE [None]
  - PNEUMOMEDIASTINUM [None]
  - PNEUMONIA BACTERIAL [None]
  - WHITE BLOOD CELL COUNT INCREASED [None]
